FAERS Safety Report 10913277 (Version 3)
Quarter: 2017Q1

REPORT INFORMATION
  Report Type: Spontaneous
  Country: FR (occurrence: FR)
  Receive Date: 20150310
  Receipt Date: 20170301
  Transmission Date: 20170428
  Serious: Yes (Hospitalization, Other)
  Sender: FDA-Public Use
  Company Number: FR-H14001-15-00317

PATIENT
  Age: 54 Year
  Sex: Female
  Weight: 68 kg

DRUGS (14)
  1. CERUBIDIN [Suspect]
     Active Substance: DAUNORUBICIN
     Route: 065
     Dates: start: 20090727, end: 20090824
  2. MYLOTARG [Suspect]
     Active Substance: GEMTUZUMAB OZOGAMICIN
     Route: 065
     Dates: start: 20090727, end: 20090824
  3. ARACYTINE [Suspect]
     Active Substance: CYTARABINE
     Route: 065
     Dates: start: 20090727, end: 20090824
  4. GENTAMICIN. [Concomitant]
     Active Substance: GENTAMICIN
     Indication: HYPERTHERMIA
     Route: 065
     Dates: end: 20090630
  5. VANCOMYCIN [Concomitant]
     Active Substance: VANCOMYCIN
     Indication: HYPERTHERMIA
     Route: 042
     Dates: start: 20090621, end: 20090629
  6. MORPHINE [Concomitant]
     Active Substance: MORPHINE
     Indication: ANALGESIC THERAPY
     Route: 042
     Dates: start: 20090629, end: 20090630
  7. MYLOTARG [Suspect]
     Active Substance: GEMTUZUMAB OZOGAMICIN
     Indication: ACUTE MYELOID LEUKAEMIA
     Route: 041
     Dates: start: 20090611, end: 20090611
  8. ARACYTINE [Suspect]
     Active Substance: CYTARABINE
     Indication: ACUTE MYELOID LEUKAEMIA
     Route: 041
     Dates: start: 20090611, end: 20090614
  9. TAZOCILLINE [Concomitant]
     Active Substance: PIPERACILLIN SODIUM\TAZOBACTAM SODIUM
     Indication: HYPERTHERMIA
     Route: 042
     Dates: start: 20090622, end: 20090629
  10. FLAGYL [Concomitant]
     Active Substance: METRONIDAZOLE\METRONIDAZOLE HYDROCHLORIDE
     Indication: HYPERTHERMIA
     Route: 048
     Dates: start: 20090626, end: 20090630
  11. CANCIDAS [Concomitant]
     Active Substance: CASPOFUNGIN ACETATE
     Indication: HYPERTHERMIA
     Route: 042
     Dates: start: 20090628, end: 20090629
  12. CERUBIDIN [Suspect]
     Active Substance: DAUNORUBICIN
     Indication: ACUTE MYELOID LEUKAEMIA
     Route: 042
     Dates: start: 20090611, end: 20090611
  13. XANAX [Concomitant]
     Active Substance: ALPRAZOLAM
     Indication: MENTAL DISORDER
     Route: 048
     Dates: start: 20090628, end: 20090629
  14. ATARAX [Concomitant]
     Active Substance: HYDROXYZINE HYDROCHLORIDE
     Indication: MENTAL DISORDER
     Route: 048
     Dates: start: 20090627, end: 20090701

REACTIONS (8)
  - Bone marrow failure [Recovered/Resolved]
  - Bronchopulmonary aspergillosis [Recovered/Resolved]
  - Diarrhoea [Unknown]
  - Hyperthermia [Unknown]
  - Oral herpes [Unknown]
  - Abscess fungal [Recovered/Resolved]
  - Thrombocytopenia [Recovered/Resolved]
  - Cough [Unknown]

NARRATIVE: CASE EVENT DATE: 200906
